FAERS Safety Report 6213009-2 (Version None)
Quarter: 2009Q2

REPORT INFORMATION
  Report Type: 
  Country: None (occurrence: None)
  Receive Date: 20090601
  Receipt Date: 20090601
  Transmission Date: 20091009
  Serious: Yes (Hospitalization)
  Sender: FDA-Public Use
  Company Number: None

PATIENT
  Sex: Male
  Weight: 17.1 kg

DRUGS (5)
  1. ONCASPAR [Suspect]
     Dosage: 1550 IU
  2. VINCRISTINE SULFATE [Suspect]
     Dosage: 3.76 MG
  3. CYTARABINE [Suspect]
     Dosage: 50 MG
  4. DEXAMETHASONE [Suspect]
     Dosage: 105 MG
  5. METHOTREXATE [Suspect]
     Dosage: 20 MG

REACTIONS (2)
  - APPENDICITIS PERFORATED [None]
  - PSEUDOMONAS INFECTION [None]
